FAERS Safety Report 9230882 (Version 1)
Quarter: 2013Q1

REPORT INFORMATION
  Report Type: Spontaneous
  Country: US (occurrence: None)
  Receive Date: 20121031
  Receipt Date: 20121031
  Transmission Date: 20140127
  Serious: No
  Sender: FDA-Public Use
  Company Number: PHEH2012US011468

PATIENT
  Age: 38 Year
  Sex: Female
  Weight: 64 kg

DRUGS (6)
  1. GILENYA [Suspect]
     Indication: RELAPSING-REMITTING MULTIPLE SCLEROSIS
     Route: 048
     Dates: start: 20110225
  2. BACLOFEN (BACLOFEN) [Concomitant]
  3. WELLBUTRIN (BUPROPION HYDROCHLORIDE) [Concomitant]
  4. FAMPRIDINE (FAMPRIDINE) [Concomitant]
  5. NUVIGIL (ARMODAFINIL) [Concomitant]
  6. ZOLOFT (SERTRALINE HYDROCHLORIDE) [Concomitant]

REACTIONS (1)
  - Menorrhagia [None]
